FAERS Safety Report 6386705-4 (Version None)
Quarter: 2009Q4

REPORT INFORMATION
  Report Type: 
  Country: None (occurrence: None)
  Receive Date: 20091002
  Receipt Date: 20090923
  Transmission Date: 20100525
  Serious: Yes (Hospitalization, Other)
  Sender: FDA-Public Use
  Company Number: US-JNJFOC-20090907147

PATIENT
  Sex: Female

DRUGS (4)
  1. REMICADE [Suspect]
     Route: 042
     Dates: start: 20090520, end: 20090825
  2. REMICADE [Suspect]
     Route: 042
     Dates: start: 20090520, end: 20090825
  3. REMICADE [Suspect]
     Route: 042
     Dates: start: 20090520, end: 20090825
  4. REMICADE [Suspect]
     Indication: RHEUMATOID ARTHRITIS
     Route: 042
     Dates: start: 20090520, end: 20090825

REACTIONS (1)
  - ASTHMA [None]
